FAERS Safety Report 4385087-7 (Version None)
Quarter: 2004Q2

REPORT INFORMATION
  Report Type: 
  Country: None (occurrence: None)
  Receive Date: 20040624
  Receipt Date: 20040624
  Transmission Date: 20050107
  Serious: Yes (Hospitalization)
  Sender: FDA-Public Use
  Company Number: None

PATIENT
  Sex: Male

DRUGS (10)
  1. AMIODARONE HCL [Suspect]
     Indication: SUPRAVENTRICULAR TACHYCARDIA
     Dosage: 200 MG DAILY ORAL
     Route: 048
  2. CARVEDILOL [Concomitant]
  3. DIGOXIN [Concomitant]
  4. LISINOPRIL [Concomitant]
  5. LOVASTATIN [Concomitant]
  6. MULTI-VITAMIN [Concomitant]
  7. SILDENAFIL [Concomitant]
  8. SPIRONOLACTONE [Concomitant]
  9. TESTOSTERONE PATCH [Concomitant]
  10. WARFARIN SODIUM [Concomitant]

REACTIONS (1)
  - HYPERTHYROIDISM [None]
